FAERS Safety Report 9782615 (Version 1)
Quarter: 2013Q4

REPORT INFORMATION
  Report Type: Spontaneous
  Country: IN (occurrence: None)
  Receive Date: 20131220
  Receipt Date: 20131220
  Transmission Date: 20140711
  Serious: Yes (Other)
  Sender: FDA-Public Use
  Company Number: 2013P1021921

PATIENT
  Age: 55 Year
  Sex: Female

DRUGS (2)
  1. TRIHEXYPHENIDYL [Suspect]
     Route: 048
  2. HALOPERIDOL [Concomitant]

REACTIONS (6)
  - Depression [None]
  - Dry mouth [None]
  - Psychomotor hyperactivity [None]
  - Withdrawal syndrome [None]
  - Drug dependence [None]
  - Psychotic disorder [None]
